FAERS Safety Report 22371684 (Version 4)
Quarter: 2023Q4

REPORT INFORMATION
  Report Type: Spontaneous
  Country: US (occurrence: US)
  Receive Date: 20230526
  Receipt Date: 20231115
  Transmission Date: 20240110
  Serious: No
  Sender: FDA-Public Use
  Company Number: US-PFIZER INC-2020287986

PATIENT
  Age: 78 Year
  Sex: Male

DRUGS (3)
  1. XELJANZ [Suspect]
     Active Substance: TOFACITINIB CITRATE
     Indication: Colitis
     Dosage: 10 MG, 2X/DAY
     Route: 048
     Dates: start: 2021
  2. XELJANZ [Suspect]
     Active Substance: TOFACITINIB CITRATE
     Indication: Colitis ulcerative
     Dosage: 5 MG, 1X/DAY
     Route: 048
     Dates: start: 20210101
  3. XELJANZ [Suspect]
     Active Substance: TOFACITINIB CITRATE
     Indication: Renal impairment
     Dosage: 5 MG, 1X/DAY
     Dates: start: 202305

REACTIONS (6)
  - White blood cell count increased [Unknown]
  - Red blood cell count decreased [Unknown]
  - Therapeutic response unexpected [Unknown]
  - Pre-existing condition improved [Unknown]
  - Off label use [Unknown]
  - Intentional product misuse [Unknown]
